FAERS Safety Report 8819829 (Version 1)
Quarter: 2012Q4

REPORT INFORMATION
  Report Type: 
  Country: US (occurrence: US)
  Receive Date: 20121001
  Receipt Date: 20121001
  Transmission Date: 20130627
  Serious: No
  Sender: FDA-Public Use
  Company Number: US-ASTRAZENECA-2012SE72459

PATIENT
  Age: 63 Year
  Sex: Female
  Weight: 68 kg

DRUGS (6)
  1. ZOMIG [Suspect]
     Indication: MIGRAINE
     Route: 048
     Dates: start: 2011
  2. ZOMIG [Suspect]
     Indication: HEADACHE
     Route: 048
     Dates: start: 2011
  3. ZOMIG [Suspect]
     Indication: MIGRAINE
     Route: 048
  4. ZOMIG [Suspect]
     Indication: HEADACHE
     Route: 048
  5. EXCEDRIN [Suspect]
     Route: 065
  6. UNNAMED MEDICATION [Concomitant]

REACTIONS (3)
  - Nervous system disorder [Unknown]
  - Pain [Unknown]
  - Drug ineffective [Unknown]
